FAERS Safety Report 7681037-6 (Version None)
Quarter: 2011Q3

REPORT INFORMATION
  Report Type: 
  Country: None (occurrence: None)
  Receive Date: 20110812
  Receipt Date: 20110801
  Transmission Date: 20111222
  Serious: Yes (Hospitalization)
  Sender: FDA-Public Use
  Company Number: US-SANOFI-AVENTIS-2011SA044464

PATIENT
  Age: 80 Year
  Sex: Male
  Weight: 93 kg

DRUGS (9)
  1. DRONEDARONE HCL [Suspect]
     Route: 048
     Dates: start: 20110502
  2. LISINOPRIL [Concomitant]
     Route: 065
  3. COREG [Concomitant]
     Route: 065
  4. FISH OIL [Concomitant]
  5. FUROSEMIDE [Concomitant]
     Route: 065
  6. ASPIRIN [Concomitant]
     Route: 065
  7. ALDACTONE [Concomitant]
     Route: 065
  8. PROTONIX [Concomitant]
     Route: 065
  9. MULTI-VITAMINS [Concomitant]

REACTIONS (1)
  - CARDIAC FAILURE [None]
